FAERS Safety Report 17620511 (Version 2)
Quarter: 2020Q2

REPORT INFORMATION
  Report Type: Report from Study
  Country: IE (occurrence: IE)
  Receive Date: 20200403
  Receipt Date: 20200409
  Transmission Date: 20200713
  Serious: Yes (Hospitalization)
  Sender: FDA-Public Use
  Company Number: IE-EMD SERONO-9152584

PATIENT
  Age: 54 Year
  Sex: Female

DRUGS (5)
  1. REBIF [Suspect]
     Active Substance: INTERFERON BETA-1A
     Route: 058
     Dates: start: 20150121, end: 20170920
  2. REBIF [Suspect]
     Active Substance: INTERFERON BETA-1A
     Indication: PRODUCT USED FOR UNKNOWN INDICATION
     Dosage: REBIF TITRATION
     Route: 058
     Dates: start: 20120723, end: 20120817
  3. REBIF [Suspect]
     Active Substance: INTERFERON BETA-1A
     Dosage: REBIF MULTIDOSE CARTRIDGE.
     Route: 058
     Dates: start: 20120820
  4. REBIF [Suspect]
     Active Substance: INTERFERON BETA-1A
     Route: 058
     Dates: start: 20180326, end: 202003
  5. REBIF [Suspect]
     Active Substance: INTERFERON BETA-1A
     Route: 058
     Dates: start: 20170920, end: 20180326

REACTIONS (4)
  - Vomiting [Recovered/Resolved]
  - Jaundice [Not Recovered/Not Resolved]
  - Diarrhoea [Recovered/Resolved]
  - Rash [Recovered/Resolved]

NARRATIVE: CASE EVENT DATE: 20200309
